FAERS Safety Report 5612327-6 (Version None)
Quarter: 2008Q1

REPORT INFORMATION
  Report Type: 
  Country: None (occurrence: None)
  Receive Date: 20080131
  Receipt Date: 20080131
  Transmission Date: 20080703
  Serious: Yes (Disabling)
  Sender: FDA-Public Use
  Company Number: None

PATIENT
  Age: 47 Year
  Sex: Female

DRUGS (2)
  1. HEPARIN 1, 000 UN BAXTER [Suspect]
     Indication: PHARMACEUTICAL PRODUCT COMPLAINT
     Dates: start: 20070918
  2. HEPARIN [Suspect]
     Indication: PHARMACEUTICAL PRODUCT COMPLAINT
     Dates: start: 20071009, end: 20080117

REACTIONS (5)
  - FLUSHING [None]
  - HEART RATE INCREASED [None]
  - HYPOAESTHESIA ORAL [None]
  - NAUSEA [None]
  - PHARMACEUTICAL PRODUCT COMPLAINT [None]
